FAERS Safety Report 15677407 (Version 4)
Quarter: 2021Q1

REPORT INFORMATION
  Report Type: Spontaneous
  Country: US (occurrence: US)
  Receive Date: 20181130
  Receipt Date: 20210107
  Transmission Date: 20210419
  Serious: Yes (Hospitalization)
  Sender: FDA-Public Use
  Company Number: US-PFIZER INC-2018491142

PATIENT
  Age: 74 Year
  Sex: Female

DRUGS (4)
  1. LASIX [Suspect]
     Active Substance: FUROSEMIDE
     Dosage: UNK
  2. IBRANCE [Suspect]
     Active Substance: PALBOCICLIB
     Indication: BREAST CANCER METASTATIC
     Dosage: 125 MG, UNK
     Dates: start: 20171219
  3. LOSARTAN POTASSIUM. [Suspect]
     Active Substance: LOSARTAN POTASSIUM
     Dosage: UNK
  4. IBRANCE [Suspect]
     Active Substance: PALBOCICLIB
     Dosage: 100 MG, CYCLIC (1 TABLET ON DAYS 1?21 OF A 35 DAY CYCLE)
     Route: 048

REACTIONS (2)
  - Dehydration [Unknown]
  - Loss of consciousness [Unknown]
